FAERS Safety Report 7506583-7 (Version None)
Quarter: 2011Q2

REPORT INFORMATION
  Report Type: 
  Country: None (occurrence: None)
  Receive Date: 20110526
  Receipt Date: 20110510
  Transmission Date: 20111010
  Serious: No
  Sender: FDA-Public Use
  Company Number: US-B.I. PHARMACEUTICALS,INC./RIDGEFIELD-2011-BP-09698BP

PATIENT
  Age: 82 Year
  Sex: Female
  Weight: 62.6 kg

DRUGS (6)
  1. DITROPAN XL [Concomitant]
     Dosage: 5 MG
     Route: 048
     Dates: start: 20081230
  2. ACTONEL [Concomitant]
     Route: 048
     Dates: start: 20041202
  3. PRADAXA [Suspect]
     Indication: ATRIAL FIBRILLATION
     Dosage: 300 MG
     Dates: start: 20110114, end: 20110326
  4. METOPROLOL TARTRATE [Concomitant]
     Dosage: 200 MG
     Route: 048
     Dates: start: 20100105
  5. DIOVAN HCT [Concomitant]
     Route: 048
     Dates: start: 20080605
  6. SIMVASTATIN [Concomitant]
     Dosage: 40 MG
     Route: 048
     Dates: start: 20041202

REACTIONS (2)
  - HAEMOGLOBIN INCREASED [None]
  - RECTAL HAEMORRHAGE [None]
